FAERS Safety Report 7715213-0 (Version None)
Quarter: 2011Q3

REPORT INFORMATION
  Report Type: 
  Country: None (occurrence: None)
  Receive Date: 20110829
  Receipt Date: 20110823
  Transmission Date: 20111222
  Serious: Yes (Hospitalization)
  Sender: FDA-Public Use
  Company Number: TR-TEVA-298115ISR

PATIENT
  Age: 68 Year
  Sex: Male

DRUGS (4)
  1. CYCLOPHOSPHAMIDE [Suspect]
     Indication: B-CELL LYMPHOMA
  2. VINCRISTINE [Suspect]
     Indication: B-CELL LYMPHOMA
  3. DOXORUBICIN HCL [Suspect]
     Indication: B-CELL LYMPHOMA
  4. PREDNISOLONE [Suspect]
     Indication: B-CELL LYMPHOMA

REACTIONS (7)
  - ABDOMINAL PAIN [None]
  - NAUSEA [None]
  - PNEUMATURIA [None]
  - ILEAL FISTULA [None]
  - FAECALURIA [None]
  - VOMITING [None]
  - BURNING SENSATION [None]
